FAERS Safety Report 6656329-X (Version None)
Quarter: 2010Q1

REPORT INFORMATION
  Report Type: 
  Country: None (occurrence: None)
  Receive Date: 20100324
  Receipt Date: 20100208
  Transmission Date: 20100710
  Serious: No
  Sender: FDA-Public Use
  Company Number: JP-GUERBET-20100005

PATIENT
  Age: 57 Year
  Sex: Male
  Weight: 69 kg

DRUGS (4)
  1. HEXABRIX [Suspect]
     Indication: ANGIOGRAM
     Dosage: 10, ML MILLILITRE(S), 1, 1, TOTAL; INTRA-ARTERIAL
     Route: 013
     Dates: start: 20100208, end: 20100208
  2. ATROPINE SULFATE [Concomitant]
  3. ATARAX [Concomitant]
  4. KYTRIL [Concomitant]

REACTIONS (2)
  - ANAPHYLACTIC SHOCK [None]
  - CHEST PAIN [None]
